FAERS Safety Report 21406417 (Version 2)
Quarter: 2022Q4

REPORT INFORMATION
  Report Type: Report from Study
  Country: US (occurrence: US)
  Receive Date: 20221004
  Receipt Date: 20221025
  Transmission Date: 20230113
  Serious: Yes (Hospitalization, Other)
  Sender: FDA-Public Use
  Company Number: US-ASTPRD-AER-2022-020425

PATIENT
  Sex: Male

DRUGS (2)
  1. ENZALUTAMIDE [Suspect]
     Active Substance: ENZALUTAMIDE
     Indication: Prostate cancer
     Dosage: UNK UNK, UNKNOWN FREQ.
     Route: 048
     Dates: start: 202208, end: 202209
  2. COUMADIN [Concomitant]
     Active Substance: WARFARIN SODIUM
     Indication: Cardiac disorder
     Dosage: UNK UNK, UNKNOWN FREQ.
     Route: 065

REACTIONS (14)
  - Heart rate irregular [Unknown]
  - Condition aggravated [Unknown]
  - Back pain [Unknown]
  - Paraesthesia [Unknown]
  - Muscular weakness [Unknown]
  - Asthenia [Unknown]
  - Vomiting [Unknown]
  - Dysstasia [Unknown]
  - Condition aggravated [Unknown]
  - Wheezing [Unknown]
  - Lethargy [Not Recovered/Not Resolved]
  - Condition aggravated [Not Recovered/Not Resolved]
  - Immobile [Unknown]
  - Condition aggravated [Unknown]
